FAERS Safety Report 12784976 (Version 1)
Quarter: 2016Q3

REPORT INFORMATION
  Report Type: Spontaneous
  Country: US (occurrence: US)
  Receive Date: 20160927
  Receipt Date: 20160927
  Transmission Date: 20161109
  Serious: No
  Sender: FDA-Public Use
  Company Number: US-IGSA-GTI003629

PATIENT
  Age: 51 Year
  Sex: Female
  Weight: 83 kg

DRUGS (13)
  1. PROLASTIN-C [Suspect]
     Active Substance: .ALPHA.1-PROTEINASE INHIBITOR HUMAN
     Indication: ALPHA-1 ANTI-TRYPSIN DEFICIENCY
     Route: 042
     Dates: start: 20140420, end: 201510
  2. DALIRESP [Concomitant]
     Active Substance: ROFLUMILAST
  3. MELOXICAM. [Concomitant]
     Active Substance: MELOXICAM
  4. SPIRIVA [Concomitant]
     Active Substance: TIOTROPIUM BROMIDE MONOHYDRATE
  5. BENZTROPINE [Concomitant]
     Active Substance: BENZTROPINE
  6. INH [Concomitant]
     Active Substance: ISONIAZID
  7. ALBUTEROL                          /00139501/ [Concomitant]
     Active Substance: ALBUTEROL
  8. ABILIFY [Concomitant]
     Active Substance: ARIPIPRAZOLE
  9. TRAZODONE [Concomitant]
     Active Substance: TRAZODONE HYDROCHLORIDE
  10. LORAZEPAM. [Concomitant]
     Active Substance: LORAZEPAM
  11. SYMBICORT [Concomitant]
     Active Substance: BUDESONIDE\FORMOTEROL FUMARATE DIHYDRATE
  12. PRISTIQ EXTENDED-RELEASE [Concomitant]
     Active Substance: DESVENLAFAXINE SUCCINATE
  13. PROLASTIN-C [Suspect]
     Active Substance: .ALPHA.1-PROTEINASE INHIBITOR HUMAN
     Indication: ALPHA-1 ANTI-TRYPSIN DEFICIENCY
     Route: 042
     Dates: start: 20151014

REACTIONS (3)
  - Hot flush [Recovered/Resolved]
  - Dyspnoea [Recovered/Resolved]
  - Sinusitis [Unknown]

NARRATIVE: CASE EVENT DATE: 20151019
